FAERS Safety Report 4700586-3 (Version None)
Quarter: 2005Q2

REPORT INFORMATION
  Report Type: 
  Country: None (occurrence: None)
  Receive Date: 20050627
  Receipt Date: 20050614
  Transmission Date: 20051028
  Serious: Yes (Hospitalization)
  Sender: FDA-Public Use
  Company Number: US-AMGEN-US131663

PATIENT
  Sex: Female
  Weight: 95 kg

DRUGS (10)
  1. EPOGEN [Suspect]
     Indication: DIALYSIS
  2. TOPROL-XL [Concomitant]
     Dates: start: 20020329
  3. PROCARDIA [Concomitant]
     Dates: start: 20040819
  4. MINOXIDIL [Concomitant]
     Dates: start: 20050330
  5. HECTORAL [Concomitant]
     Dates: start: 20040601
  6. PREVACID [Concomitant]
     Dates: start: 20041104
  7. SENSIPAR [Concomitant]
     Indication: HYPERPARATHYROIDISM SECONDARY
     Dates: start: 20050519
  8. K-DUR 10 [Concomitant]
     Dates: start: 20041230
  9. AMBIEN [Concomitant]
     Dates: start: 20050421
  10. IRON DEXTRAN [Concomitant]
     Route: 042

REACTIONS (5)
  - BURNING SENSATION [None]
  - NAUSEA [None]
  - PARAESTHESIA [None]
  - PERITONITIS [None]
  - PRURITUS [None]
